FAERS Safety Report 23297699 (Version 2)
Quarter: 2024Q1

REPORT INFORMATION
  Report Type: Spontaneous
  Country: FR (occurrence: FR)
  Receive Date: 20231214
  Receipt Date: 20240101
  Transmission Date: 20240409
  Serious: Yes (Hospitalization, Other)
  Sender: FDA-Public Use
  Company Number: FR-AFSSAPS-AVMP2023000416

PATIENT
  Age: 30 Year
  Sex: Male

DRUGS (15)
  1. ALPRAZOLAM [Suspect]
     Active Substance: ALPRAZOLAM
     Indication: Product used for unknown indication
     Dosage: 2.5 MILLIGRAM, DAILY (0.5 MG 5 X / JOUR)
     Route: 048
     Dates: start: 2023
  2. BROMAZEPAM [Suspect]
     Active Substance: BROMAZEPAM
     Indication: Product used for unknown indication
     Dosage: 3 MILLIGRAM, DAILY
     Route: 048
     Dates: start: 2023
  3. DIAZEPAM [Suspect]
     Active Substance: DIAZEPAM
     Indication: Product used for unknown indication
     Dosage: 10 MILLIGRAM (MORNING, MID DAY AND EVENING, THEN INCREASE TO 6/DAY)
     Route: 048
     Dates: start: 2023
  4. ZOLPIDEM [Suspect]
     Active Substance: ZOLPIDEM TARTRATE
     Indication: Product used for unknown indication
     Dosage: 10 MILLIGRAM, DAILY
     Route: 048
     Dates: start: 2023
  5. CANNABIS SATIVA SUBSP. INDICA TOP [Suspect]
     Active Substance: CANNABIS SATIVA SUBSP. INDICA TOP
     Indication: Product used for unknown indication
     Dosage: ONGOING
     Route: 065
     Dates: start: 2011
  6. COCAINE [Suspect]
     Active Substance: COCAINE
     Indication: Product used for unknown indication
     Dosage: (18 YRS)- ONGOING, IV OR SNORTED, 1G/D 5 (RELATED CASES: AVMPL 23-584, ENDOCARDITIS, SEVERE UNDERNUT
     Route: 065
     Dates: start: 2011
  7. PRAZEPAM [Suspect]
     Active Substance: PRAZEPAM
     Indication: Product used for unknown indication
     Dosage: FREQUENCY: TID, PLASMA PEAK 4-6H, 10-10-10
     Route: 065
  8. METHADONE [Suspect]
     Active Substance: METHADONE HYDROCHLORIDE
     Indication: Pain
     Dosage: 60 MILLIGRAM, ONCE A DAY
     Route: 065
     Dates: start: 2023
  9. METHYLPHENIDATE HYDROCHLORIDE [Suspect]
     Active Substance: METHYLPHENIDATE HYDROCHLORIDE
     Indication: Product used for unknown indication
     Dosage: 40 MILLIGRAM, 3 TIMES A DAY
     Route: 065
  10. METHYLPHENIDATE HYDROCHLORIDE [Suspect]
     Active Substance: METHYLPHENIDATE HYDROCHLORIDE
     Dosage: 30 MILLIGRAM, ONCE A DAY
     Route: 065
     Dates: start: 2023
  11. TRANXENE [Suspect]
     Active Substance: CLORAZEPATE DIPOTASSIUM
     Indication: Product used for unknown indication
     Dosage: FREQUENCY: TID, PLASMA PEAK 1H, THEREFORE MORE ADDICTIVE
     Route: 065
  12. VALIUM [Suspect]
     Active Substance: DIAZEPAM
     Indication: Anxiety
     Dosage: FREQUENCY: MORNING, NOON AND EVENING, THEN INCREASE TO 6X/DAY
     Route: 065
     Dates: start: 2023
  13. VALIUM [Suspect]
     Active Substance: DIAZEPAM
     Dosage: DIAZEPAM 60 MG/DAY DIVIDED INTO 6 DOSES: INEFFECTIVE ACCORDING TO THE PATIENT ON HIS ANXIETY
     Route: 065
  14. XANAX [Suspect]
     Active Substance: ALPRAZOLAM
     Indication: Product used for unknown indication
     Dosage: 2 MILLIGRAM, ONCE A DAY
     Route: 065
     Dates: start: 2023
  15. ZYPREXA [Suspect]
     Active Substance: OLANZAPINE
     Indication: Pain
     Dosage: UNK
     Route: 065

REACTIONS (2)
  - Endocarditis [Unknown]
  - Drug use disorder [Unknown]

NARRATIVE: CASE EVENT DATE: 20230101
